FAERS Safety Report 18097424 (Version 1)
Quarter: 2020Q3

REPORT INFORMATION
  Report Type: Spontaneous
  Country: US (occurrence: US)
  Receive Date: 20200730
  Receipt Date: 20200730
  Transmission Date: 20201103
  Serious: No
  Sender: FDA-Public Use
  Company Number: US-AMGEN-USASP2020122702

PATIENT
  Age: 36 Year
  Sex: Male

DRUGS (7)
  1. ZOLOFT [Concomitant]
     Active Substance: SERTRALINE HYDROCHLORIDE
     Dosage: UNK
  2. HALOPERIDOL. [Concomitant]
     Active Substance: HALOPERIDOL
     Dosage: 2 MILLIGRAM PER MILLILITRE
  3. RISPERIDONE. [Concomitant]
     Active Substance: RISPERIDONE
     Dosage: 1 MILLIGRAM
  4. SERTRALINE [Concomitant]
     Active Substance: SERTRALINE HYDROCHLORIDE
     Dosage: 50 MILLIGRAM
  5. ENBREL [Suspect]
     Active Substance: ETANERCEPT
     Indication: RHEUMATOID ARTHRITIS
     Dosage: 50 MILLIGRAM, QWK
     Route: 058
  6. TEMAZEPAM. [Concomitant]
     Active Substance: TEMAZEPAM
     Dosage: 15 MILLIGRAM
  7. ALPRAZOLAM. [Concomitant]
     Active Substance: ALPRAZOLAM
     Dosage: 0.25 MILLIGRAM

REACTIONS (1)
  - Product dose omission issue [Unknown]

NARRATIVE: CASE EVENT DATE: 202007
